FAERS Safety Report 9642706 (Version 2)
Quarter: 2013Q4

REPORT INFORMATION
  Report Type: Report from Study
  Country: AU (occurrence: AU)
  Receive Date: 20131024
  Receipt Date: 20131215
  Transmission Date: 20140711
  Serious: Yes (Death, Hospitalization)
  Sender: FDA-Public Use
  Company Number: AU-ROCHE-1292389

PATIENT
  Age: 65 Year
  Sex: Female

DRUGS (19)
  1. ACTEMRA [Suspect]
     Indication: RHEUMATOID ARTHRITIS
     Route: 042
     Dates: start: 20130924, end: 20130924
  2. ABATACEPT [Concomitant]
     Dosage: 125 MG/ML 1 INJECTION EVERY TUESDAY
     Route: 065
  3. OSTELIN VITAMIN D + CALCIUM TABLETS [Concomitant]
     Route: 065
  4. BRICANYL INHALER [Concomitant]
     Dosage: 500 MCG/1 DOSE 1-2 PUFFS PRN
     Route: 065
  5. PANADOL OSTEO [Concomitant]
     Dosage: 2 TDS
     Route: 065
  6. GENTAMICIN [Concomitant]
     Dosage: 80 MG/2ML VIA NEBULISER
     Route: 065
  7. ARAVA [Concomitant]
     Route: 065
  8. SOMAC (AUSTRALIA) [Concomitant]
     Route: 065
  9. ESTRADOT [Concomitant]
     Dosage: 50 MCG/24 HR. ONE NEW PATCH EVERY 3 AND 1/2 DAY
     Route: 065
  10. ENDEP [Concomitant]
     Dosage: 2 NOCTE
     Route: 065
  11. TEMAZE [Concomitant]
     Dosage: 1-2 NOCTE
     Route: 065
  12. MEGAFOL [Concomitant]
     Route: 065
  13. CYMBALTA [Concomitant]
     Route: 065
  14. MOBIC [Concomitant]
     Dosage: WITH FOOD
     Route: 065
  15. SERETIDE [Concomitant]
     Dosage: 120 DOSES 2 PUFFS BD
     Route: 065
  16. JURNISTA [Concomitant]
     Route: 065
  17. JURNISTA [Concomitant]
     Route: 065
  18. OXYNORM [Concomitant]
     Dosage: 1 PRN
     Route: 065
  19. OXYNORM [Concomitant]
     Dosage: 1 NOCTE
     Route: 065

REACTIONS (2)
  - Death [Fatal]
  - Diarrhoea [Recovering/Resolving]
